FAERS Safety Report 4691953-5 (Version None)
Quarter: 2005Q2

REPORT INFORMATION
  Report Type: 
  Country: None (occurrence: None)
  Receive Date: 20050614
  Receipt Date: 20050601
  Transmission Date: 20051028
  Serious: No
  Sender: FDA-Public Use
  Company Number: 214836

PATIENT
  Age: 45 Year
  Sex: Female
  Weight: 59.9 kg

DRUGS (4)
  1. AVASTIN [Suspect]
     Indication: COLON CANCER
     Dosage: 300 MG, Q2W, INTRAVENOUS
     Route: 042
     Dates: start: 20050413, end: 20050427
  2. FLUOROURACIL [Concomitant]
  3. OXALIPLATIN (OXALIPLATIN) [Concomitant]
  4. LEUCOVORIN CALCIUM [Concomitant]

REACTIONS (4)
  - INFLAMMATION [None]
  - PAIN [None]
  - PYODERMA GANGRENOSUM [None]
  - RECTAL HAEMORRHAGE [None]
